FAERS Safety Report 15791658 (Version 1)
Quarter: 2019Q1

REPORT INFORMATION
  Report Type: Report from Study
  Country: IT (occurrence: IT)
  Receive Date: 20190105
  Receipt Date: 20190105
  Transmission Date: 20190417
  Serious: Yes (Other)
  Sender: FDA-Public Use
  Company Number: IT-ACCORD-100531

PATIENT
  Age: 86 Year
  Sex: Female

DRUGS (5)
  1. RABEPRAZOLE [Concomitant]
     Active Substance: RABEPRAZOLE
  2. ATENOLOL/ATENOLOL HYDROCHLORIDE [Suspect]
     Active Substance: ATENOLOL HYDROCHLORIDE
     Indication: HYPERTENSION
     Route: 048
  3. EUTIROX [Concomitant]
     Active Substance: LEVOTHYROXINE SODIUM
  4. FUROSEMIDE. [Suspect]
     Active Substance: FUROSEMIDE
     Indication: HYPERTENSION
     Route: 048
  5. ATORVASTATIN [Concomitant]
     Active Substance: ATORVASTATIN

REACTIONS (3)
  - Syncope [Recovering/Resolving]
  - Polyuria [Recovering/Resolving]
  - Hypotension [Recovering/Resolving]

NARRATIVE: CASE EVENT DATE: 20170331
